FAERS Safety Report 8451152-8 (Version None)
Quarter: 2012Q2

REPORT INFORMATION
  Report Type: 
  Country: None (occurrence: None)
  Receive Date: 20120620
  Receipt Date: 20120301
  Transmission Date: 20120825
  Serious: No
  Sender: FDA-Public Use
  Company Number: US-VERTEX PHARMACEUTICALS INC.-AE-2011-002134

PATIENT
  Sex: Female
  Weight: 91.708 kg

DRUGS (5)
  1. PEGINTERFERON ALFA-2A [Concomitant]
     Indication: HEPATITIS C
     Route: 058
     Dates: start: 20110927
  2. FISH OIL [Concomitant]
     Route: 048
  3. INCIVEK [Suspect]
     Indication: HEPATITIS C
     Route: 048
     Dates: start: 20110927
  4. RIBAVIRIN [Concomitant]
     Indication: HEPATITIS C
     Route: 048
     Dates: start: 20110927
  5. CALCIUM [Concomitant]
     Route: 048

REACTIONS (3)
  - SWELLING [None]
  - RASH PRURITIC [None]
  - DRY SKIN [None]
